FAERS Safety Report 12949258 (Version 4)
Quarter: 2016Q4

REPORT INFORMATION
  Report Type: Spontaneous
  Country: US (occurrence: US)
  Receive Date: 20161117
  Receipt Date: 20161221
  Transmission Date: 20170207
  Serious: No
  Sender: FDA-Public Use
  Company Number: US-PFIZER INC-2016524640

PATIENT
  Age: 57 Year
  Sex: Female
  Weight: 68.4 kg

DRUGS (20)
  1. VENTOLIN [Concomitant]
     Active Substance: ALBUTEROL SULFATE
     Indication: DYSPNOEA
  2. VITAMIN D [Concomitant]
     Active Substance: CHOLECALCIFEROL
     Dosage: 2000 IU, DAILY
     Route: 048
  3. TEGRETOL [Concomitant]
     Active Substance: CARBAMAZEPINE
     Dosage: 400 MG, 3X/DAY [2 TABLETS BY MOUTH THREE TIMES DAILY]
     Route: 048
  4. VALACYCLOVIR HCL [Concomitant]
     Active Substance: VALACYCLOVIR HYDROCHLORIDE
     Dosage: 1000 MG TAB; DOSAGE: TAKE 2 TABLETS IN THE MORNING AND 2 TABLETS IN THE EVENING
  5. PRILOSEC [Concomitant]
     Active Substance: OMEPRAZOLE MAGNESIUM
     Dosage: 40 MG, DAILY
     Route: 048
  6. LYRICA [Suspect]
     Active Substance: PREGABALIN
     Indication: INTERVERTEBRAL DISC DEGENERATION
     Dosage: 300 MG, 2X/DAY
     Route: 048
     Dates: start: 20161104
  7. AMBIEN [Concomitant]
     Active Substance: ZOLPIDEM TARTRATE
     Indication: SLEEP DISORDER
     Dosage: 10 MG, AS NEEDED (NIGHTLY)
     Route: 048
  8. VENTOLIN HFA [Concomitant]
     Active Substance: ALBUTEROL SULFATE
     Indication: DYSPNOEA
  9. SOMA [Concomitant]
     Active Substance: CARISOPRODOL
     Indication: MUSCLE SPASMS
     Dosage: 350 MG, AS NEEDED (4 TIMES DAILY)
     Route: 048
  10. VENTOLIN [Concomitant]
     Active Substance: ALBUTEROL SULFATE
     Indication: WHEEZING
     Dosage: 3 ML, AS NEEDED (TAKE 3 ML BY NEBULIZATION EVERY 6 HOURS AS NEEDED)
     Route: 055
  11. MICONAZOLE 3 [Concomitant]
     Active Substance: MICONAZOLE NITRATE
     Dosage: 200 MG, 1X/DAY (NIGHTLY)
     Route: 067
  12. VENTOLIN HFA [Concomitant]
     Active Substance: ALBUTEROL SULFATE
     Indication: WHEEZING
     Dosage: 2 PUFFS AS NEEDED (108 (90 BASE) MCG/ACT; INHALE 2 PUFFS INTO THE LUNGS EVERY 4 HOURS)
     Route: 055
  13. FOSAMAX [Concomitant]
     Active Substance: ALENDRONATE SODIUM
     Dosage: 70 MG, WEEKLY [EVERY 7 DAYS]
  14. FLONASE [Concomitant]
     Active Substance: FLUTICASONE PROPIONATE
     Dosage: UNK UNK, DAILY [50 MCG/ACT; 2 SPRAYS IN EACH NOSTRIL]
     Route: 045
  15. LYRICA [Suspect]
     Active Substance: PREGABALIN
     Indication: LUMBAR RADICULOPATHY
     Dosage: 300 MG, 2X/DAY
     Route: 048
     Dates: start: 20161117
  16. TOPAMAX [Concomitant]
     Active Substance: TOPIRAMATE
     Dosage: 50 MG, 2X/DAY [2 TABLETS BY MOUTH 2 TIMES DAILY]
     Route: 048
  17. LOTRISONE [Concomitant]
     Active Substance: BETAMETHASONE DIPROPIONATE\CLOTRIMAZOLE
     Dosage: APPLY TO AFFECTED AREA BID X 7 DAYS
     Route: 061
  18. SPECTAZOLE [Concomitant]
     Active Substance: ECONAZOLE NITRATE
     Dosage: 2X/DAY [APPLY 2 TIMES PER DAY FOR 14 DAYS]
     Route: 061
  19. CYMBALTA [Concomitant]
     Active Substance: DULOXETINE HYDROCHLORIDE
     Dosage: 120 MG, 1X/DAY (TAKE 2 CAPSULES BY MOUTH NIGHTLY)
     Route: 048
  20. CALCIUM CITRATE + D [Concomitant]
     Dosage: 2000 MG, DAILY
     Route: 048

REACTIONS (6)
  - Insomnia [Unknown]
  - Condition aggravated [Not Recovered/Not Resolved]
  - Tremor [Unknown]
  - Pain [Not Recovered/Not Resolved]
  - Drug dose omission [Unknown]
  - Withdrawal syndrome [Unknown]
